FAERS Safety Report 8712812 (Version 2)
Quarter: 2012Q4

REPORT INFORMATION
  Report Type: 
  Country: US (occurrence: US)
  Receive Date: 20120808
  Receipt Date: 20120906
  Transmission Date: 20130627
  Serious: Yes (Hospitalization)
  Sender: FDA-Public Use
  Company Number: US-BAYER-2012-059858

PATIENT
  Age: 32 Year
  Sex: Female
  Weight: 130.98 kg

DRUGS (14)
  1. SORAFENIB [Suspect]
     Indication: BREAST CANCER
     Dosage: 400 mg, BID
     Route: 048
     Dates: start: 20120229, end: 20120611
  2. IXABEPILONE [Suspect]
     Indication: BREAST CANCER
     Dosage: 70 mg, UNK
     Route: 042
     Dates: start: 20120229, end: 20120522
  3. LORTAB [Concomitant]
     Indication: PAIN
     Dosage: 10 mg, UNK
     Dates: start: 20110401
  4. METOPROLOL [Concomitant]
     Indication: HYPERTENSION
     Dosage: 25 mg, UNK
     Dates: start: 20111001
  5. LISINOPRIL [Concomitant]
     Indication: HYPERTENSION
     Dosage: 20 mg, UNK
     Dates: start: 20111001
  6. AMLODIPINE [Concomitant]
     Indication: HYPERTENSION
     Dosage: 10 mg, UNK
     Dates: start: 20111001
  7. AMBIEN [Concomitant]
     Indication: INSOMNIA
     Dosage: 5 mg, UNK
     Dates: start: 20100801
  8. COMPAZINE [Concomitant]
     Indication: NAUSEA
     Dosage: 10 mg, UNK
     Dates: start: 20100901
  9. KEFLEX [Concomitant]
     Indication: ANTIBIOTIC PROPHYLAXIS
     Dosage: 500 mg, UNK
     Dates: start: 20120220
  10. GABAPENTIN [Concomitant]
     Indication: NEURALGIA
     Dosage: 300 mg, UNK
     Dates: start: 20111101
  11. COUMADIN [Concomitant]
     Indication: DEEP VEIN THROMBOSIS
     Dosage: 5 mg daily
     Dates: start: 201205
  12. HYDROMORPHONE [Concomitant]
  13. DIPHENHYDRAMINE [Concomitant]
     Indication: RASH
  14. DECADRON [Concomitant]

REACTIONS (7)
  - Vomiting [Recovered/Resolved]
  - Nausea [Recovered/Resolved]
  - Abdominal pain [Recovered/Resolved]
  - Syncope [Recovered/Resolved]
  - Swelling face [Recovered/Resolved]
  - Pain [Recovered/Resolved]
  - Jugular vein thrombosis [Recovered/Resolved]
